FAERS Safety Report 6330406-5 (Version None)
Quarter: 2009Q3

REPORT INFORMATION
  Report Type: 
  Country: None (occurrence: None)
  Receive Date: 20090827
  Receipt Date: 20090819
  Transmission Date: 20100115
  Serious: Yes (Disabling)
  Sender: FDA-Public Use
  Company Number: AU-WYE-G03650209

PATIENT
  Sex: Female

DRUGS (6)
  1. EFFEXOR XR [Suspect]
     Indication: NEUROTRANSMITTER LEVEL ALTERED
     Dosage: VARIOUS DOSES
  2. EFFEXOR XR [Suspect]
     Dosage: TRYING TO COME OFF 37.5 MG DAILY
     Dates: start: 20090301
  3. EFFEXOR XR [Suspect]
     Dosage: 37.5 MG EVERY SECOND DAY
     Dates: end: 20090501
  4. EFFEXOR XR [Suspect]
     Dosage: 150MG
  5. EFFEXOR XR [Suspect]
     Dosage: 75MG
  6. EFFEXOR XR [Suspect]
     Dosage: SPLITTING 37.5MG CAP AND DIVIDING THE BEADS IN HALF, THEN 1/4, THEN 1/8, THEN 1/16 AND SO ON..TO 0

REACTIONS (20)
  - AMNESIA [None]
  - ANGER [None]
  - BALANCE DISORDER [None]
  - COLD SWEAT [None]
  - DIZZINESS [None]
  - DRUG WITHDRAWAL SYNDROME [None]
  - DRY MOUTH [None]
  - DYSGEUSIA [None]
  - EMOTIONAL DISORDER [None]
  - HYPERACUSIS [None]
  - INDIFFERENCE [None]
  - INSOMNIA [None]
  - IRRITABILITY [None]
  - NAUSEA [None]
  - NIGHTMARE [None]
  - NONSPECIFIC REACTION [None]
  - PALPITATIONS [None]
  - PARAESTHESIA [None]
  - PHOTOPHOBIA [None]
  - VERTIGO [None]
